FAERS Safety Report 8756744 (Version 1)
Quarter: 2012Q4

REPORT INFORMATION
  Report Type: 
  Country: US (occurrence: US)
  Receive Date: 20120828
  Receipt Date: 20120828
  Transmission Date: 20130627
  Serious: Yes (Other)
  Sender: FDA-Public Use
  Company Number: US-JNJFOC-20120811276

PATIENT
  Age: 68 Year
  Sex: Female
  Weight: 57.61 kg

DRUGS (1)
  1. REMICADE [Suspect]
     Indication: CROHN^S DISEASE
     Route: 042
     Dates: start: 20110111

REACTIONS (2)
  - Lupus-like syndrome [Unknown]
  - Fatigue [Not Recovered/Not Resolved]
